FAERS Safety Report 5403833-8 (Version None)
Quarter: 2007Q3

REPORT INFORMATION
  Report Type: 
  Country: None (occurrence: None)
  Receive Date: 20070731
  Receipt Date: 20070731
  Transmission Date: 20080115
  Serious: Yes (Other)
  Sender: FDA-Public Use
  Company Number: None

PATIENT
  Age: 70 Year
  Sex: Female
  Weight: 61 kg

DRUGS (1)
  1. ETOMIDATE [Suspect]
     Indication: SEDATIVE THERAPY
     Dosage: 12MG PRE PROCEDURE IV BOLUS
     Route: 040
     Dates: start: 20070720, end: 20070720

REACTIONS (2)
  - DRUG EFFECT DECREASED [None]
  - PHARMACEUTICAL PRODUCT COMPLAINT [None]
